FAERS Safety Report 9121022 (Version 2)
Quarter: 2013Q3

REPORT INFORMATION
  Report Type: Report from Study
  Country: BR (occurrence: BR)
  Receive Date: 20130226
  Receipt Date: 20130909
  Transmission Date: 20140515
  Serious: Yes (Hospitalization)
  Sender: FDA-Public Use
  Company Number: BR-ROCHE-1194953

PATIENT
  Sex: Female
  Weight: 84.9 kg

DRUGS (11)
  1. MABTHERA [Suspect]
     Indication: RHEUMATOID ARTHRITIS
     Dosage: LAST INFUSION ON : 18/AUG/2013
     Route: 042
     Dates: start: 20120731
  2. VENLAFAXINE [Concomitant]
     Route: 065
  3. LOSARTAN [Concomitant]
     Route: 065
  4. RIVOTRIL [Concomitant]
     Route: 065
  5. FLANCOX [Concomitant]
     Route: 065
  6. CINOXACIN [Concomitant]
  7. VONAU [Concomitant]
  8. PRESSAT [Concomitant]
  9. CHLOROQUINE [Concomitant]
  10. FIXICAL [Concomitant]
  11. OMEPRAZOLE [Concomitant]

REACTIONS (6)
  - Blood pressure increased [Unknown]
  - Headache [Unknown]
  - Diarrhoea [Not Recovered/Not Resolved]
  - Vomiting [Not Recovered/Not Resolved]
  - Arthralgia [Not Recovered/Not Resolved]
  - Sensory disturbance [Not Recovered/Not Resolved]
